FAERS Safety Report 4940602-7 (Version None)
Quarter: 2006Q1

REPORT INFORMATION
  Report Type: 
  Country: None (occurrence: None)
  Receive Date: 20060126
  Receipt Date: 20050907
  Transmission Date: 20060701
  Serious: Yes (Hospitalization)
  Sender: FDA-Public Use
  Company Number: USA041081579

PATIENT
  Age: 70 Year
  Sex: Female
  Weight: 44 kg

DRUGS (8)
  1. EVISTA [Suspect]
     Indication: OSTEOPOROSIS
     Dates: start: 19970701
  2. FORTEO [Suspect]
     Indication: OSTEOPOROSIS
     Dosage: 20 UG/1 DAY
     Dates: start: 20040915
  3. TOBRAMYCIN [Concomitant]
  4. VERAPAMIL [Concomitant]
  5. ALPRAZOLAM [Concomitant]
  6. CENTRUM SILVER [Concomitant]
  7. CALCIUM WITH VITAMIN D [Concomitant]
  8. FOSAMAX [Concomitant]

REACTIONS (25)
  - ARTHRALGIA [None]
  - BODY HEIGHT DECREASED [None]
  - BONE DENSITY DECREASED [None]
  - BRONCHIECTASIS [None]
  - DYSPNOEA [None]
  - ELECTROCARDIOGRAM CHANGE [None]
  - FALL [None]
  - FATIGUE [None]
  - HEADACHE [None]
  - HERPES SIMPLEX [None]
  - INJECTION SITE ERYTHEMA [None]
  - INJECTION SITE IRRITATION [None]
  - JOINT SWELLING [None]
  - LUNG INFECTION [None]
  - LUNG INFECTION PSEUDOMONAL [None]
  - MUSCLE SPASMS [None]
  - PAIN [None]
  - PARANASAL SINUS HYPERSECRETION [None]
  - PNEUMONIA [None]
  - PYREXIA [None]
  - SINUS CONGESTION [None]
  - SINUSITIS [None]
  - STOMACH DISCOMFORT [None]
  - STRESS [None]
  - VIRAL INFECTION [None]
